FAERS Safety Report 7590661-0 (Version None)
Quarter: 2011Q3

REPORT INFORMATION
  Report Type: 
  Country: None (occurrence: None)
  Receive Date: 20110705
  Receipt Date: 20110113
  Transmission Date: 20111222
  Serious: Yes (Other)
  Sender: FDA-Public Use
  Company Number: US-BAYER-201039457NA

PATIENT
  Age: 23 Year
  Sex: Female
  Weight: 72.562 kg

DRUGS (9)
  1. COLESTID [Concomitant]
     Indication: IRRITABLE BOWEL SYNDROME
     Dosage: UNK
     Dates: start: 20070101
  2. IBUPROFEN [Concomitant]
  3. ULTRAM [Concomitant]
     Indication: DYSPEPSIA
     Dosage: UNK
     Dates: start: 20060101
  4. YAZ [Suspect]
     Indication: CONTRACEPTION
     Dosage: UNK
     Route: 048
     Dates: start: 20060101, end: 20080101
  5. PRILOSEC [Concomitant]
     Indication: ABDOMINAL PAIN
     Dosage: UNK
     Dates: start: 20070101
  6. COLESTID [Concomitant]
     Indication: GALLBLADDER DISORDER
  7. PRILOSEC [Concomitant]
     Indication: VOMITING
  8. NUVARING [Concomitant]
     Dosage: UNK
  9. PRILOSEC [Concomitant]
     Indication: NAUSEA

REACTIONS (12)
  - ANXIETY [None]
  - ABDOMINAL DISTENSION [None]
  - DIARRHOEA [None]
  - CHOLECYSTECTOMY [None]
  - CHOLECYSTITIS CHRONIC [None]
  - CHOLELITHIASIS [None]
  - DYSPEPSIA [None]
  - CONSTIPATION [None]
  - DEPRESSION [None]
  - CHOLESTEROSIS [None]
  - FLATULENCE [None]
  - SCAR [None]
